FAERS Safety Report 19833923 (Version 2)
Quarter: 2021Q3

REPORT INFORMATION
  Report Type: Spontaneous
  Country: GB (occurrence: TN)
  Receive Date: 20210915
  Receipt Date: 20210928
  Transmission Date: 20211014
  Serious: Yes (Hospitalization, Other)
  Sender: FDA-Public Use
  Company Number: TN-ELI_LILLY_AND_COMPANY-TN202109001469

PATIENT
  Age: 68 Year
  Sex: Male

DRUGS (4)
  1. GEMCITABINE HYDROCHLORIDE. [Suspect]
     Active Substance: GEMCITABINE HYDROCHLORIDE
     Indication: NASOPHARYNGEAL CANCER METASTATIC
     Dosage: 1 G/M2, CYCLICAL, FIRST LINE CHEMOTHERAPY, ON DAYS 1
     Route: 065
     Dates: start: 2019
  2. METFORMIN [Concomitant]
     Active Substance: METFORMIN HYDROCHLORIDE
     Indication: TYPE 2 DIABETES MELLITUS
     Dosage: UNK, UNKNOWN
     Route: 065
  3. CISPLATIN. [Concomitant]
     Active Substance: CISPLATIN
     Indication: NASOPHARYNGEAL CANCER METASTATIC
     Dosage: 80 MG/M2, CYCLICAL, FIRST LINE CHEMOTHERAPY, ON DAY 1
     Route: 065
     Dates: start: 2019
  4. PREDNISOLONE. [Concomitant]
     Active Substance: PREDNISOLONE
     Indication: LYMPHANGITIS
     Dosage: 40 MG, DAILY
     Route: 065
     Dates: start: 2019

REACTIONS (3)
  - Atrial fibrillation [Recovered/Resolved]
  - Drug intolerance [Recovered/Resolved]
  - Toxicity to various agents [Recovered/Resolved]
